FAERS Safety Report 9069211 (Version 2)
Quarter: 2013Q1

REPORT INFORMATION
  Report Type: Report from Study
  Country: JP (occurrence: JP)
  Receive Date: 20130215
  Receipt Date: 20130304
  Transmission Date: 20140127
  Serious: Yes (Hospitalization)
  Sender: FDA-Public Use
  Company Number: JP-BAXTER-2013BAX005754

PATIENT
  Age: 58 None
  Sex: Male
  Weight: 56.9 kg

DRUGS (24)
  1. ENDOXAN 1G [Suspect]
     Indication: DIFFUSE LARGE B-CELL LYMPHOMA
     Route: 042
     Dates: start: 20120330
  2. ENDOXAN 1G [Suspect]
     Route: 042
     Dates: start: 20120607
  3. RITUXIMAB [Suspect]
     Indication: DIFFUSE LARGE B-CELL LYMPHOMA
     Route: 042
     Dates: start: 20120329
  4. RITUXIMAB [Suspect]
     Route: 042
     Dates: start: 20120607
  5. PREDNISONE [Suspect]
     Indication: DIFFUSE LARGE B-CELL LYMPHOMA
     Route: 048
     Dates: start: 20120329
  6. PREDNISONE [Suspect]
     Route: 048
     Dates: start: 20120611
  7. DOXORUBICIN [Suspect]
     Indication: DIFFUSE LARGE B-CELL LYMPHOMA
     Route: 042
     Dates: start: 20120330
  8. DOXORUBICIN [Suspect]
     Route: 042
     Dates: start: 20120607
  9. VINCRISTINE [Suspect]
     Indication: DIFFUSE LARGE B-CELL LYMPHOMA
     Route: 042
     Dates: start: 20120330
  10. VINCRISTINE [Suspect]
     Route: 042
     Dates: start: 20120607
  11. MAGNESIUM OXIDE [Concomitant]
     Indication: CONSTIPATION
     Route: 065
     Dates: start: 20120330
  12. SULFAMETHOXAZOLE/TRIMETHOPRIM [Concomitant]
     Indication: INFECTION PROPHYLAXIS
     Route: 065
     Dates: start: 20120402
  13. PARACETAMOL [Concomitant]
     Indication: PREMEDICATION
     Route: 065
     Dates: start: 20120329, end: 20120723
  14. CHLORPHENIRAMINE MALEATE [Concomitant]
     Indication: PREMEDICATION
     Route: 065
     Dates: start: 20120329, end: 20120723
  15. CHLORPHENIRAMINE MALEATE [Concomitant]
     Indication: CONTRAST MEDIA ALLERGY
     Route: 065
     Dates: start: 20120624
  16. SODIUM PICOSULFATE [Concomitant]
     Indication: CONSTIPATION
     Route: 065
     Dates: start: 20120403
  17. SODIUM GUALENATE [Concomitant]
     Indication: STOMATITIS
     Route: 065
     Dates: start: 20120424
  18. INSULIN ASPART [Concomitant]
     Indication: PRODUCT USED FOR UNKNOWN INDICATION
     Route: 065
     Dates: start: 20120424
  19. SODIUM HYALURONATE [Concomitant]
     Indication: OPHTHALMIC HERPES SIMPLEX
     Route: 065
     Dates: start: 20120607, end: 20120703
  20. OFLOXACIN [Concomitant]
     Indication: OPHTHALMIC HERPES SIMPLEX
     Route: 065
     Dates: start: 20120608, end: 20120613
  21. COLISTIMETHATE SODIUM [Concomitant]
     Indication: OPHTHALMIC HERPES SIMPLEX
     Route: 065
     Dates: start: 20120608, end: 20120622
  22. METHYLPREDISOLONE [Concomitant]
     Indication: OPHTHALMIC HERPES SIMPLEX
     Route: 065
     Dates: start: 20120612, end: 20120613
  23. LEVOFLOXACIN [Concomitant]
     Indication: OPHTHALMIC HERPES SIMPLEX
     Route: 065
     Dates: start: 20120623, end: 20120703
  24. OLOPATADINE HYDROCHLORIDE [Concomitant]
     Indication: CONTRAST MEDIA ALLERGY
     Route: 065
     Dates: start: 20120624, end: 20120628

REACTIONS (1)
  - Varicella [Recovered/Resolved]
